FAERS Safety Report 22291406 (Version 1)
Quarter: 2023Q2

REPORT INFORMATION
  Report Type: Report from Study
  Country: US (occurrence: US)
  Receive Date: 20230506
  Receipt Date: 20230506
  Transmission Date: 20230722
  Serious: Yes (Other)
  Sender: FDA-Public Use
  Company Number: US-002147023-NVSC2023US099836

PATIENT
  Sex: Male

DRUGS (4)
  1. OXALIPLATIN [Suspect]
     Active Substance: OXALIPLATIN
     Indication: Pancreatic carcinoma metastatic
     Dosage: UNK UNK, Q2W
     Route: 065
     Dates: start: 202204, end: 202211
  2. FLUOROURACIL [Suspect]
     Active Substance: FLUOROURACIL
     Indication: Pancreatic carcinoma metastatic
     Dosage: UNK UNK, Q2W
     Route: 065
     Dates: start: 202204, end: 202211
  3. LEUCOVORIN [Suspect]
     Active Substance: LEUCOVORIN
     Indication: Pancreatic carcinoma metastatic
     Dosage: UNK UNK, Q2W
     Route: 065
     Dates: start: 202204, end: 202211
  4. IRINOTECAN [Suspect]
     Active Substance: IRINOTECAN
     Indication: Pancreatic carcinoma metastatic
     Dosage: UNK UNK, Q2W
     Route: 065
     Dates: start: 202204, end: 202211

REACTIONS (2)
  - Pancreatic carcinoma metastatic [Unknown]
  - Malignant neoplasm progression [Unknown]
